FAERS Safety Report 8018877-X (Version None)
Quarter: 2012Q1

REPORT INFORMATION
  Report Type: 
  Country: None (occurrence: None)
  Receive Date: 20120103
  Receipt Date: 20111228
  Transmission Date: 20120608
  Serious: Yes (Other)
  Sender: FDA-Public Use
  Company Number: US-PFIZER INC-2011313356

PATIENT
  Age: 17 Year
  Sex: Male

DRUGS (1)
  1. CELEBREX [Suspect]
     Indication: SPORTS INJURY
     Dosage: UNK
     Dates: start: 20110101

REACTIONS (3)
  - LIGAMENT RUPTURE [None]
  - CIRCUMSTANCE OR INFORMATION CAPABLE OF LEADING TO MEDICATION ERROR [None]
  - MENISCUS LESION [None]
